FAERS Safety Report 5026888-1 (Version None)
Quarter: 2006Q2

REPORT INFORMATION
  Report Type: 
  Country: None (occurrence: None)
  Receive Date: 20060501
  Receipt Date: 20060209
  Transmission Date: 20061013
  Serious: No
  Sender: FDA-Public Use
  Company Number: 200610793BWH

PATIENT
  Age: 50 Year
  Sex: Female

DRUGS (9)
  1. NEXAVAR [Suspect]
     Indication: METASTASES TO LIVER
     Dosage: 400 MG, BID, ORAL
     Route: 048
     Dates: start: 20060209
  2. NEXAVAR [Suspect]
     Indication: METASTATIC RENAL CELL CARCINOMA
     Dosage: 400 MG, BID, ORAL
     Route: 048
     Dates: start: 20060209
  3. FUROSEMIDE [Concomitant]
  4. PROCHLORPERAZINE [Concomitant]
  5. LEVOFLOXACIN [Concomitant]
  6. MORPHINE SULFATE PROLONGED [Concomitant]
  7. HYDROCODONE [Concomitant]
  8. MORPHINE SULFATE [Concomitant]
  9. TEMAZEPAM [Concomitant]

REACTIONS (1)
  - VISION BLURRED [None]
